FAERS Safety Report 6428913-X (Version None)
Quarter: 2009Q4

REPORT INFORMATION
  Report Type: 
  Country: None (occurrence: None)
  Receive Date: 20091104
  Receipt Date: 20091104
  Transmission Date: 20100525
  Serious: Yes (Disabling)
  Sender: FDA-Public Use
  Company Number: None

PATIENT
  Age: 27 Year
  Sex: Female
  Weight: 55.7924 kg

DRUGS (1)
  1. DROSPIRENONE AND ESTRADIOL [Suspect]
     Indication: CONTRACEPTION
     Dosage: 1PILL DAILY PO
     Route: 048
     Dates: start: 20090401, end: 20091030

REACTIONS (1)
  - GALLBLADDER NON-FUNCTIONING [None]
